FAERS Safety Report 18582526 (Version 10)
Quarter: 2023Q2

REPORT INFORMATION
  Report Type: Report from Study
  Country: CA (occurrence: CA)
  Receive Date: 20201205
  Receipt Date: 20230417
  Transmission Date: 20230722
  Serious: Yes (Hospitalization, Other)
  Sender: FDA-Public Use
  Company Number: CA-TAKEDA-2020TUS055447

PATIENT
  Age: 28 Year
  Sex: Male

DRUGS (7)
  1. VEDOLIZUMAB [Suspect]
     Active Substance: VEDOLIZUMAB
     Indication: Crohn^s disease
     Dosage: 300 MILLIGRAM
     Route: 042
     Dates: start: 20200728
  2. VEDOLIZUMAB [Suspect]
     Active Substance: VEDOLIZUMAB
     Dosage: 300 MILLIGRAM
     Route: 042
  3. VEDOLIZUMAB [Suspect]
     Active Substance: VEDOLIZUMAB
     Dosage: 300 MILLIGRAM
     Route: 042
  4. VEDOLIZUMAB [Suspect]
     Active Substance: VEDOLIZUMAB
     Dosage: 300 MILLIGRAM
     Route: 042
  5. VEDOLIZUMAB [Suspect]
     Active Substance: VEDOLIZUMAB
     Dosage: 300 MILLIGRAM, Q4WEEKS
     Route: 042
     Dates: start: 20230206
  6. PREDNISONE [Concomitant]
     Active Substance: PREDNISONE
     Dosage: 35 MILLIGRAM
     Dates: start: 202007
  7. STELARA [Concomitant]
     Active Substance: USTEKINUMAB
     Dosage: 260 MILLIGRAM
     Route: 042
     Dates: start: 202107

REACTIONS (16)
  - Crohn^s disease [Unknown]
  - Malnutrition [Unknown]
  - Dysphagia [Unknown]
  - Gastrointestinal inflammation [Unknown]
  - Anaemia [Unknown]
  - Cachexia [Unknown]
  - Diarrhoea [Unknown]
  - Haematochezia [Unknown]
  - Asthenia [Not Recovered/Not Resolved]
  - Insomnia [Unknown]
  - Frequent bowel movements [Unknown]
  - Weight decreased [Unknown]
  - Haemoglobin decreased [Unknown]
  - Abdominal pain [Unknown]
  - Fatigue [Not Recovered/Not Resolved]
  - Off label use [Unknown]

NARRATIVE: CASE EVENT DATE: 20230206
